FAERS Safety Report 8581342 (Version 2)
Quarter: 2013Q2

REPORT INFORMATION
  Report Type: Spontaneous
  Country: JP (occurrence: JP)
  Receive Date: 20120525
  Receipt Date: 20130529
  Transmission Date: 20140414
  Serious: Yes (Other)
  Sender: FDA-Public Use
  Company Number: PHHY2012JP044273

PATIENT
  Age: 66 Year
  Sex: Female

DRUGS (3)
  1. CARBOPLATIN [Suspect]
     Indication: SMALL CELL LUNG CANCER
  2. IRINOTECAN [Suspect]
     Indication: SMALL CELL LUNG CANCER
  3. IRRADIATION [Concomitant]

REACTIONS (3)
  - Myelodysplastic syndrome [Unknown]
  - Pancytopenia [Unknown]
  - Acute myeloid leukaemia [Unknown]
